FAERS Safety Report 13451746 (Version 1)
Quarter: 2017Q2

REPORT INFORMATION
  Report Type: Spontaneous
  Country: US (occurrence: US)
  Receive Date: 20170418
  Receipt Date: 20170418
  Transmission Date: 20170830
  Serious: Yes (Other)
  Sender: FDA-Public Use
  Company Number: None

PATIENT
  Age: 73 Year
  Sex: Female
  Weight: 68.1 kg

DRUGS (4)
  1. ACETAMINOPHEN. [Concomitant]
     Active Substance: ACETAMINOPHEN
  2. LOSARTAN. [Concomitant]
     Active Substance: LOSARTAN
  3. DEXAMETHASON [Suspect]
     Active Substance: DEXAMETHASONE
     Indication: INFLAMMATION
     Route: 048
     Dates: start: 20170315, end: 20170326
  4. NAPROXEN SODIUM. [Concomitant]
     Active Substance: NAPROXEN SODIUM

REACTIONS (11)
  - Arthralgia [None]
  - Rash [None]
  - Hypertension [None]
  - Insomnia [None]
  - Fatigue [None]
  - Heart rate increased [None]
  - Asthenia [None]
  - Bone pain [None]
  - Hypoaesthesia [None]
  - Hyperhidrosis [None]
  - Vision blurred [None]

NARRATIVE: CASE EVENT DATE: 20170326
